FAERS Safety Report 6889681-0 (Version None)
Quarter: 2010Q3

REPORT INFORMATION
  Report Type: 
  Country: None (occurrence: None)
  Receive Date: 20100730
  Receipt Date: 20080506
  Transmission Date: 20110219
  Serious: No
  Sender: FDA-Public Use
  Company Number: US-PFIZER INC-2008031411

PATIENT
  Sex: Male

DRUGS (3)
  1. LIPITOR [Suspect]
     Indication: BLOOD CHOLESTEROL INCREASED
     Route: 048
     Dates: start: 20060101
  2. PRAVACHOL [Concomitant]
  3. HMG COA REDUCTASE INHIBITORS [Concomitant]

REACTIONS (3)
  - ARTHRALGIA [None]
  - MIDDLE INSOMNIA [None]
  - MYALGIA [None]
